FAERS Safety Report 10181492 (Version 2)
Quarter: 2014Q2

REPORT INFORMATION
  Report Type: Spontaneous
  Country: US (occurrence: US)
  Receive Date: 20140519
  Receipt Date: 20140625
  Transmission Date: 20141212
  Serious: Yes (Life-Threatening)
  Sender: FDA-Public Use
  Company Number: US-GLAXOSMITHKLINE-A1072806A

PATIENT
  Age: 68 Year
  Sex: Female

DRUGS (4)
  1. COREG [Suspect]
     Indication: PRODUCT USED FOR UNKNOWN INDICATION
     Route: 065
     Dates: start: 201404
  2. BLOOD PRESSURE MED [Concomitant]
  3. FORADIL [Concomitant]
  4. SPIRIVA [Concomitant]

REACTIONS (1)
  - Gas poisoning [Recovered/Resolved]
